FAERS Safety Report 10243679 (Version 1)
Quarter: 2014Q2

REPORT INFORMATION
  Report Type: Spontaneous
  Country: US (occurrence: US)
  Receive Date: 20140618
  Receipt Date: 20140618
  Transmission Date: 20141212
  Serious: Yes (Death, Hospitalization)
  Sender: FDA-Public Use
  Company Number: US-B.I. PHARMACEUTICALS,INC./RIDGEFIELD-2014-BI-27224BP

PATIENT
  Age: 84 Year
  Sex: Female

DRUGS (11)
  1. PRADAXA [Suspect]
     Indication: ATRIAL FIBRILLATION
     Dosage: 150 MG
     Route: 048
     Dates: start: 201105, end: 20140520
  2. NEXIUM [Concomitant]
     Indication: HIATUS HERNIA
     Dosage: 1 ANZ
     Route: 048
     Dates: start: 201301, end: 20140520
  3. LASIX [Concomitant]
     Indication: FLUID RETENTION
     Dosage: 40 MG
     Route: 048
     Dates: start: 2009, end: 20140520
  4. CELEXA [Concomitant]
     Indication: ANXIETY
     Dosage: 20 MG
     Route: 048
     Dates: start: 201205, end: 20140520
  5. VITAMIN C [Concomitant]
     Indication: SUPPLEMENTATION THERAPY
     Dosage: 1000 MG
     Route: 048
     Dates: end: 20140527
  6. ADVAIR [Concomitant]
     Indication: CHRONIC OBSTRUCTIVE PULMONARY DISEASE
     Dosage: 2 PUF
     Route: 055
     Dates: start: 201305, end: 20140520
  7. MULTIVITAMIN [Concomitant]
     Indication: SUPPLEMENTATION THERAPY
     Dosage: 1 ANZ
     Route: 048
     Dates: end: 20140520
  8. VIGOMOX [Concomitant]
     Indication: GLAUCOMA
     Dosage: 1 ANZ
     Route: 050
     Dates: start: 2011, end: 20140520
  9. ICAP [Concomitant]
     Indication: EYE DISORDER
     Dosage: 2 ANZ
     Route: 048
     Dates: end: 20140527
  10. POTASSIUM [Concomitant]
     Indication: SUPPLEMENTATION THERAPY
     Dosage: 1 ANZ
     Route: 048
     Dates: start: 2009, end: 20140520
  11. VITAMIN D [Concomitant]
     Indication: SUPPLEMENTATION THERAPY
     Dosage: 7142.8571 U
     Route: 048
     Dates: end: 20140527

REACTIONS (4)
  - Death [Fatal]
  - Fall [Recovered/Resolved]
  - Hip fracture [Recovered/Resolved]
  - Decubitus ulcer [Unknown]
